FAERS Safety Report 18271697 (Version 3)
Quarter: 2021Q1

REPORT INFORMATION
  Report Type: Report from Study
  Country: CO (occurrence: CO)
  Receive Date: 20200916
  Receipt Date: 20210203
  Transmission Date: 20210419
  Serious: Yes (Hospitalization)
  Sender: FDA-Public Use
  Company Number: NVSC2020CO229193

PATIENT
  Age: 12 Year
  Sex: Female
  Weight: 36 kg

DRUGS (2)
  1. OMNITROPE [Suspect]
     Active Substance: SOMATROPIN
     Dosage: 1.6 MG, QD
     Route: 058
     Dates: end: 20200520
  2. OMNITROPE [Suspect]
     Active Substance: SOMATROPIN
     Indication: GROWTH HORMONE DEFICIENCY
     Dosage: 1.6 MG, QD
     Route: 058
     Dates: start: 20171122, end: 20200101

REACTIONS (5)
  - Asthma [Unknown]
  - Asthmatic crisis [Unknown]
  - Swelling face [Unknown]
  - Blood glucose increased [Not Recovered/Not Resolved]
  - Blood insulin increased [Not Recovered/Not Resolved]

NARRATIVE: CASE EVENT DATE: 20191001
